FAERS Safety Report 9385121 (Version 1)
Quarter: 2013Q3

REPORT INFORMATION
  Report Type: Spontaneous
  Country: GR (occurrence: None)
  Receive Date: 20130701
  Receipt Date: 20130701
  Transmission Date: 20140515
  Serious: Yes (Other)
  Sender: FDA-Public Use
  Company Number: 2013AP006246

PATIENT
  Age: 30 Year
  Sex: Female

DRUGS (4)
  1. FERRIPROX [Suspect]
     Indication: THALASSAEMIA
  2. DESFERAL [Concomitant]
  3. FILICINE [Concomitant]
  4. CALCIORAL /00108001/ [Concomitant]

REACTIONS (3)
  - Dizziness [None]
  - Pain [None]
  - Polyneuropathy [None]
